FAERS Safety Report 23506849 (Version 2)
Quarter: 2024Q1

REPORT INFORMATION
  Report Type: Report from Study
  Country: IN (occurrence: IN)
  Receive Date: 20240209
  Receipt Date: 20240315
  Transmission Date: 20240409
  Serious: Yes (Hospitalization)
  Sender: FDA-Public Use
  Company Number: IN-002147023-NVSC2023IN279238

PATIENT
  Age: 32 Year
  Sex: Female

DRUGS (1)
  1. TASIGNA [Suspect]
     Active Substance: NILOTINIB
     Indication: Chronic myeloid leukaemia
     Dosage: 300 MG, BID
     Route: 048
     Dates: start: 20230325

REACTIONS (4)
  - Hypotension [Unknown]
  - Platelet count abnormal [Unknown]
  - Communication disorder [Unknown]
  - Product use issue [Unknown]

NARRATIVE: CASE EVENT DATE: 20230325
